FAERS Safety Report 5591495-9 (Version None)
Quarter: 2008Q1

REPORT INFORMATION
  Report Type: 
  Country: None (occurrence: None)
  Receive Date: 20080115
  Receipt Date: 20080104
  Transmission Date: 20080703
  Serious: Yes (Other)
  Sender: FDA-Public Use
  Company Number: US-JNJFOC-20080101420

PATIENT
  Age: 39 Year
  Sex: Female
  Weight: 56.7 kg

DRUGS (3)
  1. NIZORAL A-D [Suspect]
     Route: 061
  2. NIZORAL A-D [Suspect]
     Indication: PRURITUS
     Route: 061
  3. AZITHROMYCIN [Concomitant]
     Indication: PHARYNGITIS STREPTOCOCCAL

REACTIONS (4)
  - BLISTER [None]
  - ERYTHEMA [None]
  - OEDEMA PERIPHERAL [None]
  - PARAESTHESIA [None]
